FAERS Safety Report 22397896 (Version 1)
Quarter: 2023Q2

REPORT INFORMATION
  Report Type: Other
  Country: CA (occurrence: CA)
  Receive Date: 20230602
  Receipt Date: 20230602
  Transmission Date: 20230721
  Serious: Yes (Other)
  Sender: FDA-Public Use
  Company Number: CA-GE HEALTHCARE-2023CSU004385

PATIENT
  Age: 63 Year
  Sex: Male

DRUGS (2)
  1. OMNIPAQUE [Suspect]
     Active Substance: IOHEXOL
     Indication: Computerised tomogram
     Dosage: UNK UNK, SINGLE
     Route: 065
  2. OMNIPAQUE [Suspect]
     Active Substance: IOHEXOL
     Indication: Product used for unknown indication

REACTIONS (4)
  - Sneezing [Unknown]
  - Chest discomfort [Unknown]
  - Eye pruritus [Unknown]
  - Pruritus [Unknown]
